FAERS Safety Report 8379014-5 (Version None)
Quarter: 2012Q2

REPORT INFORMATION
  Report Type: 
  Country: None (occurrence: None)
  Receive Date: 20120522
  Receipt Date: 20120522
  Transmission Date: 20120825
  Serious: Yes (Disabling)
  Sender: FDA-Public Use
  Company Number: None

PATIENT
  Age: 34 Year
  Sex: Male
  Weight: 59.8748 kg

DRUGS (2)
  1. TOPAMAX [Suspect]
     Indication: MIGRAINE
     Dosage: 1 ONCE DAY PO
     Route: 048
     Dates: start: 20100101, end: 20120521
  2. TOPAMAX [Suspect]
     Indication: MIGRAINE
     Dosage: 1 ONCE DAY PO
     Route: 048
     Dates: start: 20100101, end: 20120521

REACTIONS (6)
  - EYE PAIN [None]
  - CHOLELITHIASIS [None]
  - SPEECH DISORDER [None]
  - WEIGHT DECREASED [None]
  - OCULAR HYPERAEMIA [None]
  - ACNE [None]
